FAERS Safety Report 25381098 (Version 1)
Quarter: 2025Q2

REPORT INFORMATION
  Report Type: Report from Study
  Country: US (occurrence: US)
  Receive Date: 20250530
  Receipt Date: 20250530
  Transmission Date: 20250717
  Serious: Yes (Other)
  Sender: MALLINCKRODT
  Company Number: US-MALLINCKRODT-MNK202402586

PATIENT
  Sex: Female

DRUGS (3)
  1. CORTICOTROPIN [Suspect]
     Active Substance: CORTICOTROPIN
     Indication: Rheumatoid arthritis
  2. CORTICOTROPIN [Suspect]
     Active Substance: CORTICOTROPIN
     Indication: Rheumatoid arthritis
  3. CORTISONE [Concomitant]
     Active Substance: CORTISONE

REACTIONS (12)
  - Spondylitis [Not Recovered/Not Resolved]
  - Rheumatoid arthritis [Unknown]
  - Arthropathy [Unknown]
  - Pain [Not Recovered/Not Resolved]
  - Gingival pain [Not Recovered/Not Resolved]
  - Neuralgia [Not Recovered/Not Resolved]
  - Glossodynia [Recovered/Resolved]
  - Bone pain [Not Recovered/Not Resolved]
  - Tongue biting [Unknown]
  - Skin wrinkling [Unknown]
  - Swelling face [Unknown]
  - Drug ineffective [Unknown]
